FAERS Safety Report 25286476 (Version 3)
Quarter: 2025Q2

REPORT INFORMATION
  Report Type: Spontaneous
  Country: JP (occurrence: JP)
  Receive Date: 20250509
  Receipt Date: 20250529
  Transmission Date: 20250716
  Serious: Yes (Hospitalization)
  Sender: AMGEN
  Company Number: JP-KYOWAKIRIN-2025KK007911

PATIENT
  Age: 8 Decade
  Sex: Female

DRUGS (2)
  1. DARBEPOETIN ALFA [Suspect]
     Active Substance: DARBEPOETIN ALFA
     Indication: Product used for unknown indication
     Dosage: 30 UG (MAINTENANCE DOSE), 1X/4 WEEKS
     Route: 065
  2. DARBEPOETIN ALFA [Suspect]
     Active Substance: DARBEPOETIN ALFA
     Dosage: UNK, 1X/2 WEEKS
     Route: 065

REACTIONS (1)
  - Infection [Recovered/Resolved]
